FAERS Safety Report 8082112 (Version 3)
Quarter: 2012Q4

REPORT INFORMATION
  Report Type: 
  Country: FR (occurrence: FR)
  Receive Date: 20110809
  Receipt Date: 20121128
  Transmission Date: 20130627
  Serious: Yes (Death)
  Sender: FDA-Public Use
  Company Number: FR-PFIZER INC-2011178071

PATIENT
  Age: 58 Year
  Sex: Male

DRUGS (4)
  1. VFEND [Suspect]
     Dosage: 200 mg, 2x/day
     Route: 048
     Dates: end: 20080612
  2. ANSATIPINE [Interacting]
     Dosage: 150 mg, 2x/day
     Dates: start: 200801, end: 20080612
  3. CLARITHROMYCIN [Concomitant]
     Dosage: 1 g/day
     Dates: start: 200801
  4. CIPROFLOXACIN [Concomitant]
     Dosage: 1 g, UNK
     Dates: start: 200801

REACTIONS (2)
  - Drug ineffective [Fatal]
  - Drug interaction [Fatal]
